FAERS Safety Report 10411205 (Version 4)
Quarter: 2015Q3

REPORT INFORMATION
  Report Type: Spontaneous
  Country: US (occurrence: US)
  Receive Date: 20140826
  Receipt Date: 20150721
  Transmission Date: 20151125
  Serious: No
  Sender: FDA-Public Use
  Company Number: US-ASTRAZENECA-2013SE62273

PATIENT
  Age: 32492 Day
  Sex: Female
  Weight: 61.2 kg

DRUGS (4)
  1. SYMBICORT [Suspect]
     Active Substance: BUDESONIDE\FORMOTEROL FUMARATE DIHYDRATE
     Indication: ASTHMA
     Dosage: 160/4.5MCG INHALER 2 PUFFS TWICE A DAY
     Route: 055
     Dates: start: 20150501
  2. SYMBICORT [Suspect]
     Active Substance: BUDESONIDE\FORMOTEROL FUMARATE DIHYDRATE
     Indication: ASTHMA
     Dosage: 160 MCG/4.5 MCG,  BID
     Route: 055
     Dates: start: 20130806
  3. WATER PILL [Concomitant]
     Active Substance: UNSPECIFIED INGREDIENT
  4. SYMBICORT [Suspect]
     Active Substance: BUDESONIDE\FORMOTEROL FUMARATE DIHYDRATE
     Indication: ASTHMA
     Dosage: 160/4.5MCG, 2 PUFFS TWICE A DAY (160 UG BID) 120 INHALATIONS,
     Route: 055
     Dates: start: 2005

REACTIONS (8)
  - Anger [Unknown]
  - Intentional device misuse [Unknown]
  - Dry eye [Unknown]
  - Visual acuity reduced [Unknown]
  - Eye disorder [Unknown]
  - Circumstance or information capable of leading to medication error [Unknown]
  - Circumstance or information capable of leading to device use error [Unknown]
  - Product quality issue [Unknown]

NARRATIVE: CASE EVENT DATE: 20130806
